FAERS Safety Report 7169631-2 (Version None)
Quarter: 2010Q4

REPORT INFORMATION
  Report Type: 
  Country: None (occurrence: None)
  Receive Date: 20101217
  Receipt Date: 20101208
  Transmission Date: 20110411
  Serious: Yes (Other)
  Sender: FDA-Public Use
  Company Number: US-PFIZER INC-2010167506

PATIENT
  Sex: Male
  Weight: 88 kg

DRUGS (9)
  1. XALATAN [Suspect]
     Indication: GLAUCOMA
     Dosage: ONE DROP, UNK, BOTH EYES
     Route: 047
     Dates: start: 20070101
  2. SIMVASTATIN [Concomitant]
     Dosage: UNK
  3. LISINOPRIL [Concomitant]
     Dosage: UNK
  4. METOPROLOL [Concomitant]
     Dosage: UNK
  5. ACETYLSALICYLIC ACID [Concomitant]
     Dosage: 325 MG, UNK
  6. SERTRALINE [Concomitant]
     Dosage: UNK
  7. CENTRUM [Concomitant]
     Dosage: UNK
  8. TERAZOSIN [Concomitant]
     Dosage: UNK
  9. AMBIEN [Concomitant]
     Dosage: UNK

REACTIONS (2)
  - EYE IRRITATION [None]
  - MYOCARDIAL INFARCTION [None]
